FAERS Safety Report 18818699 (Version 1)
Quarter: 2021Q1

REPORT INFORMATION
  Report Type: Spontaneous
  Country: US (occurrence: US)
  Receive Date: 20210201
  Receipt Date: 20210201
  Transmission Date: 20210419
  Serious: Yes (Other)
  Sender: FDA-Public Use
  Company Number: US-BAYER-2021-033768

PATIENT
  Sex: Female

DRUGS (1)
  1. ALKA?SELTZER HEARTBURN RELIEFCHEWS COOL MINT [Suspect]
     Active Substance: CALCIUM CARBONATE
     Dosage: UNK

REACTIONS (1)
  - Gastric ulcer haemorrhage [Unknown]
